FAERS Safety Report 7763574-9 (Version None)
Quarter: 2011Q3

REPORT INFORMATION
  Report Type: 
  Country: None (occurrence: None)
  Receive Date: 20110920
  Receipt Date: 20110914
  Transmission Date: 20111222
  Serious: Yes (Death, Hospitalization, Other)
  Sender: FDA-Public Use
  Company Number: US-AMGEN-QUU431845

PATIENT
  Age: 74 Year
  Sex: Female

DRUGS (11)
  1. NEUPOGEN [Concomitant]
     Dosage: 480 MUG, UNK
  2. METRONIDAZOLE [Concomitant]
  3. BEVACIZUMAB [Concomitant]
     Dosage: UNK UNK, Q2WK
  4. NPLATE [Suspect]
     Indication: IDIOPATHIC THROMBOCYTOPENIC PURPURA
     Dosage: 250 MUG, UNK
     Route: 058
     Dates: start: 20090616, end: 20110412
  5. FASLODEX [Concomitant]
     Indication: BREAST CANCER
     Dosage: 500 MG, Q2WK
     Route: 030
     Dates: start: 20110101, end: 20110412
  6. CEFUROXIME [Concomitant]
     Dosage: 500 MG, BID
  7. ATENOLOL [Concomitant]
     Dosage: 50 MG, QD
  8. FUROSEMIDE [Concomitant]
     Dosage: 20 MG, QD
  9. PACLITAXEL PTOTEIN-BOUND PARTICLES FOR INJECTABLE SUSPENSION [Concomitant]
     Dosage: UNK UNK, Q2WK
  10. LISINOPRIL [Concomitant]
     Dosage: 20 MG, QD
  11. TRIAMTERENE AND HYDROCHLOROTHIAZIDE [Concomitant]

REACTIONS (16)
  - DIARRHOEA [None]
  - ASTHENIA [None]
  - DECREASED APPETITE [None]
  - DISORIENTATION [None]
  - DISEASE PROGRESSION [None]
  - OEDEMA [None]
  - FLUID OVERLOAD [None]
  - HEMIPARESIS [None]
  - ECCHYMOSIS [None]
  - BREAST CANCER METASTATIC [None]
  - HYPERKALAEMIA [None]
  - WHITE BLOOD CELL COUNT DECREASED [None]
  - RENAL FAILURE ACUTE [None]
  - PETECHIAE [None]
  - URINARY TRACT INFECTION [None]
  - SINUSITIS [None]
